FAERS Safety Report 11577954 (Version 2)
Quarter: 2025Q3

REPORT INFORMATION
  Report Type: Spontaneous
  Country: IN (occurrence: IN)
  Receive Date: 20150930
  Receipt Date: 20250813
  Transmission Date: 20251021
  Serious: Yes (Other)
  Sender: SANOFI AVENTIS
  Company Number: IN-SA-2015SA143148

PATIENT
  Age: 42 Year
  Sex: Male

DRUGS (3)
  1. DOCETAXEL [Suspect]
     Active Substance: DOCETAXEL
     Indication: Bladder adenocarcinoma stage unspecified
  2. CISPLATIN [Suspect]
     Active Substance: CISPLATIN
     Indication: Bladder adenocarcinoma stage unspecified
  3. GEMCITABINE [Suspect]
     Active Substance: GEMCITABINE
     Indication: Bladder adenocarcinoma stage unspecified

REACTIONS (2)
  - Condition aggravated [Not Recovered/Not Resolved]
  - Drug ineffective [Unknown]
